FAERS Safety Report 7654262-8 (Version None)
Quarter: 2011Q3

REPORT INFORMATION
  Report Type: 
  Country: None (occurrence: None)
  Receive Date: 20110803
  Receipt Date: 20110725
  Transmission Date: 20111222
  Serious: Yes (Other)
  Sender: FDA-Public Use
  Company Number: US-ASTRAZENECA-2011SE44570

PATIENT
  Age: 66 Year
  Sex: Female

DRUGS (3)
  1. OMEPRAZOLE [Suspect]
     Route: 048
  2. PRILOSEC OTC [Suspect]
     Route: 048
  3. NEXIUM [Suspect]
     Route: 048

REACTIONS (9)
  - MUSCLE SPASMS [None]
  - ATRIAL FIBRILLATION [None]
  - DRUG DOSE OMISSION [None]
  - CHEST DISCOMFORT [None]
  - DYSPEPSIA [None]
  - CARDIOMEGALY [None]
  - NAUSEA [None]
  - DRUG INEFFECTIVE [None]
  - CARDIAC MURMUR [None]
